FAERS Safety Report 7691955-0 (Version None)
Quarter: 2011Q3

REPORT INFORMATION
  Report Type: 
  Country: None (occurrence: None)
  Receive Date: 20110818
  Receipt Date: 20110810
  Transmission Date: 20111222
  Serious: Yes (Other)
  Sender: FDA-Public Use
  Company Number: JP-BAYER-2011-072343

PATIENT
  Age: 15 Year
  Sex: Female
  Weight: 53 kg

DRUGS (4)
  1. YAZ [Suspect]
     Indication: DYSMENORRHOEA
     Dosage: 1 DF, QD
     Route: 048
     Dates: start: 20110509, end: 20110519
  2. MARZULENE S [Concomitant]
     Dosage: 1 DF, TID
     Route: 048
     Dates: start: 20110509
  3. VOLTAREN [Concomitant]
     Indication: DYSMENORRHOEA
     Dosage: 2 DF, TID
     Route: 048
  4. SESDEN [Concomitant]
     Dosage: 1 DF, TID
     Route: 048

REACTIONS (5)
  - CRYING [None]
  - FEELING ABNORMAL [None]
  - ANGER [None]
  - NAUSEA [None]
  - PAIN IN EXTREMITY [None]
